FAERS Safety Report 5974116-2 (Version None)
Quarter: 2008Q4

REPORT INFORMATION
  Report Type: 
  Country: None (occurrence: None)
  Receive Date: 20081201
  Receipt Date: 20081126
  Transmission Date: 20090506
  Serious: Yes (Hospitalization)
  Sender: FDA-Public Use
  Company Number: PL-PFIZER INC-2008100834

PATIENT
  Sex: Male
  Weight: 61 kg

DRUGS (4)
  1. BLINDED UK-427,857 [Suspect]
  2. COMBIVIR [Suspect]
  3. INVIRASE [Concomitant]
  4. RITONAVIR [Concomitant]

REACTIONS (1)
  - MYOCARDIAL INFARCTION [None]
